FAERS Safety Report 5463076-9 (Version None)
Quarter: 2007Q3

REPORT INFORMATION
  Report Type: 
  Country: None (occurrence: None)
  Receive Date: 20070905
  Receipt Date: 20070905
  Transmission Date: 20080115
  Serious: Yes (Hospitalization)
  Sender: FDA-Public Use
  Company Number: GB-BAUSCH-2007BL003173

PATIENT
  Age: 55 Year
  Sex: Female
  Weight: 60 kg

DRUGS (13)
  1. DEXAMETHASONE SODIUM PHOSPHATE [Suspect]
     Indication: GENERAL ANAESTHESIA
     Dates: start: 20050701, end: 20050701
  2. FENTANYL [Suspect]
     Indication: GENERAL ANAESTHESIA
     Dates: start: 20050701, end: 20050701
  3. FENTANYL [Suspect]
     Dates: start: 20060601, end: 20060601
  4. DEXAMETHASONE SODIUM PHOSPHATE [Suspect]
     Dates: start: 20061201, end: 20061201
  5. FENTANYL [Suspect]
     Dates: start: 20061201, end: 20061201
  6. ALFENTANIL [Suspect]
     Indication: GENERAL ANAESTHESIA
     Dates: start: 20050701, end: 20050701
  7. GABAPENTIN [Suspect]
     Indication: ARTHRALGIA
     Dates: start: 20050501
  8. ISOFLURANE [Suspect]
     Indication: GENERAL ANAESTHESIA
     Dates: start: 20060601, end: 20060601
  9. PROPOFOL [Suspect]
     Indication: GENERAL ANAESTHESIA
     Dates: start: 20050701, end: 20050701
  10. PROPOFOL [Suspect]
     Dates: start: 20060601, end: 20060601
  11. SEVOFLURANE [Suspect]
     Indication: GENERAL ANAESTHESIA
     Dates: start: 20061201, end: 20061201
  12. CODEINE SUL TAB [Concomitant]
     Indication: ARTHRALGIA
     Dates: start: 20050501
  13. PARACETAMOL [Concomitant]
     Indication: ARTHRALGIA
     Dates: start: 20050501

REACTIONS (3)
  - DRUG INTERACTION [None]
  - DYSTONIA [None]
  - MYOTONIA [None]
